FAERS Safety Report 9097653 (Version 3)
Quarter: 2013Q4

REPORT INFORMATION
  Report Type: Report from Study
  Country: RU (occurrence: RU)
  Receive Date: 20130212
  Receipt Date: 20131210
  Transmission Date: 20140711
  Serious: Yes (Hospitalization)
  Sender: FDA-Public Use
  Company Number: PHHO2013RU002237

PATIENT
  Age: 29 Year
  Sex: Male
  Weight: 75 kg

DRUGS (10)
  1. MYFORTIC [Suspect]
     Indication: RENAL TRANSPLANT
     Dosage: UNK
     Route: 048
     Dates: start: 20120608, end: 20121126
  2. PROGRAF [Suspect]
     Indication: RENAL TRANSPLANT
     Dosage: 2 MG, BID
     Route: 048
     Dates: start: 20120609
  3. METYPRED//METHYLPREDNISOLONE [Suspect]
     Indication: RENAL TRANSPLANT
     Dosage: 2 MG, UNK
     Route: 048
     Dates: start: 20120608, end: 20130204
  4. METYPRED//METHYLPREDNISOLONE [Suspect]
     Dosage: UNK
  5. BISOPROLOL [Concomitant]
     Indication: HYPERTENSION
     Dosage: 10 MG, UNK
     Route: 048
     Dates: start: 20120608
  6. CORDAFLEX [Concomitant]
     Indication: HYPERTENSION
     Dosage: 40 MG, UNK
     Route: 048
     Dates: start: 20120608
  7. VALCYT [Concomitant]
     Indication: PROPHYLAXIS
     Dosage: 450 MG, UNK
     Route: 048
     Dates: start: 20120608
  8. BISEPTOL [Concomitant]
     Indication: PROPHYLAXIS
     Dosage: 480 MG, UNK
     Route: 048
     Dates: start: 20120608
  9. NISTATIN [Concomitant]
     Indication: PROPHYLAXIS
     Dosage: 1000 IU, BID
     Route: 048
     Dates: start: 20120608
  10. FAMOTIDIN [Concomitant]
     Indication: PROPHYLAXIS
     Dosage: UNK
     Dates: start: 20120608, end: 20130209

REACTIONS (1)
  - Lung disorder [Unknown]
